FAERS Safety Report 6173903-8 (Version None)
Quarter: 2009Q2

REPORT INFORMATION
  Report Type: 
  Country: None (occurrence: None)
  Receive Date: 20090429
  Receipt Date: 20090429
  Transmission Date: 20091009
  Serious: Yes (Hospitalization)
  Sender: FDA-Public Use
  Company Number: None

PATIENT
  Age: 61 Year
  Sex: Female
  Weight: 83.9 kg

DRUGS (5)
  1. DOCETAXEL [Suspect]
     Indication: BREAST CANCER
     Dosage: 140MG Q3WEEKS IV DRIP
     Route: 041
     Dates: start: 20090415, end: 20090415
  2. CYCLOPHOSPHAMIDE [Suspect]
     Dosage: 1180MG Q3WEEKS IV DRIP
     Route: 041
  3. ACETAMINOPHEN [Concomitant]
  4. MULTIVITAMIN {ONE-A-DAY} [Concomitant]
  5. CALCIUM CITRATE + D {CITRACAL + D} [Concomitant]

REACTIONS (8)
  - CHILLS [None]
  - COUGH [None]
  - DECREASED APPETITE [None]
  - MALAISE [None]
  - MYALGIA [None]
  - NASAL CONGESTION [None]
  - PYREXIA [None]
  - RHINORRHOEA [None]
